FAERS Safety Report 9028934 (Version 4)
Quarter: 2013Q3

REPORT INFORMATION
  Report Type: Spontaneous
  Country: US (occurrence: US)
  Receive Date: 20130124
  Receipt Date: 20130712
  Transmission Date: 20140515
  Serious: Yes (Other)
  Sender: FDA-Public Use
  Company Number: US-UCBSA-067234

PATIENT
  Age: 31 Year
  Sex: Female

DRUGS (4)
  1. CIMZIA [Suspect]
     Indication: CROHN^S DISEASE
     Dosage: 400 MG ONCE EVERY 4 WEEKS
     Dates: start: 20090401
  2. CIMZIA [Suspect]
     Indication: CROHN^S DISEASE
     Dates: start: 20111205, end: 201212
  3. CIMZIA [Suspect]
     Indication: CROHN^S DISEASE
     Dates: start: 201303
  4. PREDNISONE [Concomitant]
     Indication: CROHN^S DISEASE
     Dosage: DOSE: 40 MG
     Dates: start: 201212, end: 201303

REACTIONS (10)
  - Crohn^s disease [Unknown]
  - Sinusitis [Recovered/Resolved]
  - Malaise [Not Recovered/Not Resolved]
  - Bronchitis [Recovered/Resolved]
  - Pneumonia [Recovered/Resolved]
  - Nephrolithiasis [Recovered/Resolved]
  - Blood urine present [Recovered/Resolved]
  - Pregnancy [Recovered/Resolved]
  - Breast feeding [Not Recovered/Not Resolved]
  - Abdominal pain upper [Recovered/Resolved]
